FAERS Safety Report 9640735 (Version 1)
Quarter: 2013Q4

REPORT INFORMATION
  Report Type: Report from Study
  Country: US (occurrence: US)
  Receive Date: 20131023
  Receipt Date: 20131023
  Transmission Date: 20140711
  Serious: No
  Sender: FDA-Public Use
  Company Number: US-ABBVIE-13P-163-1132763-00

PATIENT
  Age: 48 Year
  Sex: Female

DRUGS (15)
  1. LUPRON DEPOT [Suspect]
     Indication: ABDOMINAL PAIN
     Dates: start: 201211
  2. LUPRON DEPOT [Suspect]
     Indication: NAUSEA
  3. LUPRON DEPOT [Suspect]
     Indication: CROHN^S DISEASE
  4. LUPRON DEPOT [Suspect]
     Indication: OFF LABEL USE
  5. IMURAN [Concomitant]
     Indication: PRODUCT USED FOR UNKNOWN INDICATION
  6. LISINOPRIL [Concomitant]
     Indication: PRODUCT USED FOR UNKNOWN INDICATION
  7. MAXZIDE [Concomitant]
     Indication: PRODUCT USED FOR UNKNOWN INDICATION
     Dosage: 1 - 75/50MG TAB DAILY
  8. ZOLOFT [Concomitant]
     Indication: PRODUCT USED FOR UNKNOWN INDICATION
  9. PRILOSEC [Concomitant]
     Indication: PRODUCT USED FOR UNKNOWN INDICATION
  10. IRON [Concomitant]
     Indication: MINERAL SUPPLEMENTATION
  11. MULTIVITAMIN [Concomitant]
     Indication: PRODUCT USED FOR UNKNOWN INDICATION
  12. FISH OIL [Concomitant]
     Indication: PRODUCT USED FOR UNKNOWN INDICATION
  13. VITAMIN C [Concomitant]
     Indication: PRODUCT USED FOR UNKNOWN INDICATION
  14. VITAMIN E [Concomitant]
     Indication: PRODUCT USED FOR UNKNOWN INDICATION
  15. HYDROCORTISONE [Concomitant]
     Indication: PRODUCT USED FOR UNKNOWN INDICATION

REACTIONS (5)
  - Intestinal obstruction [Unknown]
  - Vaginal haemorrhage [Recovered/Resolved]
  - Constipation [Not Recovered/Not Resolved]
  - Nausea [Unknown]
  - Off label use [Not Recovered/Not Resolved]
